FAERS Safety Report 5001609-7 (Version None)
Quarter: 2006Q2

REPORT INFORMATION
  Report Type: 
  Country: None (occurrence: None)
  Receive Date: 20060515
  Receipt Date: 20060504
  Transmission Date: 20061013
  Serious: Yes (Hospitalization)
  Sender: FDA-Public Use
  Company Number: PHBS2006AR06873

PATIENT
  Age: 59 Year
  Sex: Male

DRUGS (3)
  1. THALIDOMIDE [Concomitant]
     Route: 065
  2. DEXAMETHASONE [Concomitant]
     Route: 065
  3. ZOMETA [Suspect]
     Indication: MULTIPLE MYELOMA
     Dosage: 4 MG
     Route: 065
     Dates: start: 20020101, end: 20051201

REACTIONS (6)
  - BONE DISORDER [None]
  - DENTAL DISORDER PROPHYLAXIS [None]
  - IMPAIRED HEALING [None]
  - MOUTH ULCERATION [None]
  - ORAL PAIN [None]
  - TOOTH EXTRACTION [None]
